FAERS Safety Report 7379040-9 (Version None)
Quarter: 2011Q1

REPORT INFORMATION
  Report Type: 
  Country: None (occurrence: None)
  Receive Date: 20110328
  Receipt Date: 20110318
  Transmission Date: 20110831
  Serious: Yes (Hospitalization, Other)
  Sender: FDA-Public Use
  Company Number: US-ELI_LILLY_AND_COMPANY-US201102005376

PATIENT
  Sex: Female
  Weight: 86.621 kg

DRUGS (9)
  1. CO Q-10 [Concomitant]
  2. LOVAZA [Concomitant]
  3. ASCORBIC ACID [Suspect]
  4. ALIMTA [Suspect]
     Indication: LUNG ADENOCARCINOMA
     Dosage: 500 MG/M2, UNK
     Route: 042
     Dates: start: 20110118, end: 20110130
  5. MULTI-VITAMIN [Concomitant]
  6. FOLIC ACID [Concomitant]
     Dosage: 1 MG, QD
     Dates: start: 20110104
  7. CORTICOSTEROIDS [Concomitant]
     Dosage: 4 MG, UNK
     Dates: start: 20110118
  8. CARBOPLATIN [Concomitant]
     Indication: LUNG ADENOCARCINOMA
     Route: 042
  9. VITAMIN B-12 [Concomitant]
     Dosage: 1 MG, UNK
     Dates: start: 20110104

REACTIONS (9)
  - THYROID NEOPLASM [None]
  - VERTEBRAL ARTERY STENOSIS [None]
  - MITRAL VALVE INCOMPETENCE [None]
  - TRICUSPID VALVE INCOMPETENCE [None]
  - GLIOSIS [None]
  - HEMIPARESIS [None]
  - LUNG NEOPLASM [None]
  - LACUNAR INFARCTION [None]
  - LEFT VENTRICULAR DYSFUNCTION [None]
